FAERS Safety Report 23953376 (Version 1)
Quarter: 2024Q2

REPORT INFORMATION
  Report Type: Spontaneous
  Country: US (occurrence: US)
  Receive Date: 20240608
  Receipt Date: 20240608
  Transmission Date: 20240716
  Serious: Yes (Death, Other)
  Sender: FDA-Public Use
  Company Number: US-AMGEN-USASP2024109159

PATIENT
  Age: 16 Year
  Sex: Male

DRUGS (7)
  1. PEGFILGRASTIM [Suspect]
     Active Substance: PEGFILGRASTIM
     Indication: Prophylaxis
     Dosage: 0.1 MILLIGRAM/KILOGRAM, (MAX 6 MG), DAY 4
     Route: 058
  2. METHOTREXATE [Concomitant]
     Active Substance: METHOTREXATE
     Dosage: 250 MILLIGRAM/SQ. METER, OVER 24 HOURS (50 MG/M2 OVER 2 HOURS THEN 200 MG/M2 OVER 22 HOURS) DAY 1
     Route: 042
  3. CYTARABINE [Concomitant]
     Active Substance: CYTARABINE
     Dosage: 0.5 GRAM PER SQUARE METRE, Q12H, DAYS 2 AND 3 (4 TOTAL DOSES)
     Route: 042
  4. INOTUZUMAB OZOGAMICIN [Concomitant]
     Active Substance: INOTUZUMAB OZOGAMICIN
     Dosage: 0.3 MILLIGRAM/SQ. METER, DAYS 2-8
     Route: 042
  5. THIOTEPA [Concomitant]
     Active Substance: THIOTEPA
  6. FLUDARABINE [Concomitant]
     Active Substance: FLUDARABINE PHOSPHATE
     Dosage: UNK
  7. BUSULFAN [Concomitant]
     Active Substance: BUSULFAN
     Dosage: UNK

REACTIONS (2)
  - Acute lymphocytic leukaemia recurrent [Fatal]
  - Venoocclusive liver disease [Unknown]
